FAERS Safety Report 6211967-3 (Version None)
Quarter: 2009Q2

REPORT INFORMATION
  Report Type: 
  Country: None (occurrence: None)
  Receive Date: 20090602
  Receipt Date: 20090527
  Transmission Date: 20091009
  Serious: Yes (Death, Hospitalization)
  Sender: FDA-Public Use
  Company Number: IT-CELGENEUS-083-21880-08121263

PATIENT
  Sex: Male
  Weight: 83 kg

DRUGS (11)
  1. REVLIMID [Suspect]
     Indication: MANTLE CELL LYMPHOMA
     Route: 048
     Dates: start: 20081201, end: 20081215
  2. DEXAMETHASONE [Suspect]
     Indication: MANTLE CELL LYMPHOMA
     Route: 065
     Dates: start: 20081201, end: 20081208
  3. FUROSEMIDE [Concomitant]
     Indication: DIURETIC THERAPY
     Route: 051
  4. ALBUMIN (HUMAN) [Concomitant]
     Indication: DIURETIC THERAPY
     Route: 051
  5. NEUPOGEN [Concomitant]
     Indication: DRUG USE FOR UNKNOWN INDICATION
     Dosage: 1FL
     Route: 065
     Dates: start: 20081211
  6. DURAGESIC-100 [Concomitant]
     Indication: ANALGESIC THERAPY
     Route: 065
     Dates: start: 20081204, end: 20081218
  7. MORPHINE [Concomitant]
     Indication: ANALGESIC THERAPY
     Route: 051
     Dates: start: 20081218
  8. ACYCLOVIR [Concomitant]
     Indication: ANTIVIRAL PROPHYLAXIS
     Route: 065
  9. ALLOPURINOL [Concomitant]
     Indication: DRUG USE FOR UNKNOWN INDICATION
     Route: 065
  10. CEFTAZIDIME [Concomitant]
     Route: 051
     Dates: start: 20081211, end: 20081213
  11. PREDNISONE [Concomitant]
     Indication: DRUG USE FOR UNKNOWN INDICATION
     Route: 051

REACTIONS (2)
  - NEOPLASM PROGRESSION [None]
  - PNEUMONIA [None]
